FAERS Safety Report 8792963 (Version 1)
Quarter: 2012Q4

REPORT INFORMATION
  Report Type: Report from Study
  Country: HU (occurrence: HU)
  Receive Date: 20120918
  Receipt Date: 20120918
  Transmission Date: 20130627
  Serious: Yes (Other)
  Sender: FDA-Public Use
  Company Number: HU-ROCHE-1122742

PATIENT
  Sex: Female

DRUGS (3)
  1. XELODA [Suspect]
     Indication: BREAST CANCER
     Dosage: dose:5 + 4
     Route: 048
     Dates: start: 20100721, end: 201108
  2. HERCEPTIN [Concomitant]
  3. TAXOL [Concomitant]

REACTIONS (2)
  - Yellow skin [Unknown]
  - Metastases to liver [Unknown]
